FAERS Safety Report 6828191-3 (Version None)
Quarter: 2010Q3

REPORT INFORMATION
  Report Type: 
  Country: None (occurrence: None)
  Receive Date: 20100709
  Receipt Date: 20100630
  Transmission Date: 20110219
  Serious: Yes (Life-Threatening, Hospitalization)
  Sender: FDA-Public Use
  Company Number: CH-ABBOTT-10P-151-0654394-00

PATIENT
  Age: 68 Year
  Sex: Female

DRUGS (2)
  1. HUMIRA [Suspect]
     Indication: PSORIATIC ARTHROPATHY
     Dosage: IN LOWER ABDOMEN
     Route: 058
     Dates: start: 20090304, end: 20090628
  2. CORTISON [Concomitant]
     Indication: STEROID THERAPY

REACTIONS (3)
  - ABDOMINAL PAIN LOWER [None]
  - SWEAT GLAND DISORDER [None]
  - SWEAT GLAND TUMOUR [None]
